FAERS Safety Report 4657761-6 (Version None)
Quarter: 2005Q2

REPORT INFORMATION
  Report Type: 
  Country: None (occurrence: None)
  Receive Date: 20050510
  Receipt Date: 20050315
  Transmission Date: 20051028
  Serious: Yes (Other)
  Sender: FDA-Public Use
  Company Number: 200512434GDDC

PATIENT
  Age: 57 Year
  Sex: Female

DRUGS (3)
  1. ARAVA [Suspect]
     Indication: RHEUMATOID ARTHRITIS
     Route: 048
     Dates: start: 19991010, end: 20050314
  2. TEGRETOL [Suspect]
     Indication: EPILEPSY
     Dosage: DOSE: UNK
  3. MOBIC [Concomitant]
     Dosage: DOSE: UNK

REACTIONS (5)
  - BRADYPHRENIA [None]
  - DRUG INTERACTION [None]
  - DYSPEPSIA [None]
  - HYPOAESTHESIA [None]
  - TRANSIENT ISCHAEMIC ATTACK [None]
